FAERS Safety Report 5412537-7 (Version None)
Quarter: 2007Q3

REPORT INFORMATION
  Report Type: 
  Country: None (occurrence: None)
  Receive Date: 20070813
  Receipt Date: 20070802
  Transmission Date: 20080115
  Serious: Yes (Death, Other)
  Sender: FDA-Public Use
  Company Number: B0482406A

PATIENT
  Age: 76 Year
  Sex: Female

DRUGS (9)
  1. ZOFRAN [Suspect]
     Dosage: 1INJ WEEKLY
     Route: 042
     Dates: start: 20061207, end: 20061214
  2. GEMZAR [Suspect]
     Indication: PANCREATIC NEOPLASM
     Dosage: 240MG PER DAY
     Route: 042
     Dates: start: 20061207, end: 20061214
  3. SKENAN [Concomitant]
     Route: 065
  4. LASILIX 20 [Concomitant]
     Route: 065
  5. DETENSIEL [Concomitant]
     Route: 065
  6. LORAZEPAM [Concomitant]
     Route: 065
  7. DIANTALVIC [Concomitant]
     Route: 065
  8. NEO-MERCAZOLE TAB [Concomitant]
     Route: 065
  9. FORLAX [Concomitant]
     Route: 065

REACTIONS (4)
  - DEATH [None]
  - PRURITUS [None]
  - RASH PAPULAR [None]
  - TOXIC SKIN ERUPTION [None]
